FAERS Safety Report 8138413-7 (Version None)
Quarter: 2012Q1

REPORT INFORMATION
  Report Type: 
  Country: None (occurrence: None)
  Receive Date: 20120215
  Receipt Date: 20120202
  Transmission Date: 20120608
  Serious: Yes (Death, Hospitalization, Other)
  Sender: FDA-Public Use
  Company Number: DE-ROCHE-1017076

PATIENT
  Sex: Male
  Weight: 94 kg

DRUGS (15)
  1. LEUCOVORIN CALCIUM [Suspect]
     Indication: COLORECTAL CANCER METASTATIC
     Route: 042
     Dates: start: 20110801, end: 20110901
  2. ALLOPURINOL [Concomitant]
     Indication: HYPERURICAEMIA
     Route: 048
  3. PREDNISOLONE [Concomitant]
  4. LEUCOVORIN CALCIUM [Suspect]
     Dosage: LAST DOSE PRIOR TO SAE: 22 NOV 2011
     Dates: start: 20111001
  5. FLUOROURACIL [Suspect]
     Indication: COLORECTAL CANCER METASTATIC
     Dosage: LAST DOSE PRIOR TO SAE 22/NOV/2011
     Route: 042
     Dates: start: 20110801, end: 20110901
  6. ACETYLCYSTEINE [Concomitant]
  7. ARMODAFINIL [Concomitant]
  8. ENOXAPARIN SODIUM [Concomitant]
     Indication: THROMBOSIS PROPHYLAXIS
     Route: 058
  9. OXALIPLATIN [Suspect]
     Indication: COLORECTAL CANCER METASTATIC
     Dosage: LAST DOSE PRIOR TO SAE 22/NOV/2011
     Route: 042
     Dates: start: 20110801, end: 20110901
  10. OXALIPLATIN [Suspect]
     Dosage: TEMPORARILY INTERRUPTED
     Route: 042
     Dates: start: 20111001
  11. AVASTIN [Suspect]
     Indication: COLORECTAL CANCER METASTATIC
     Dosage: LAST DOSE PRIOR TO SAE 22/NOV/2011, TEMPORARILY INTERRUPTED
     Route: 065
     Dates: start: 20111001
  12. PANTOPRAZOLE [Concomitant]
  13. FINASTERID [Concomitant]
     Route: 048
  14. FLUOROURACIL [Suspect]
     Dosage: TEMPORARILY INTERRUPTED
     Dates: start: 20111001
  15. AMARYL [Concomitant]
     Indication: DIABETES MELLITUS
     Route: 048

REACTIONS (4)
  - PNEUMONIA [None]
  - CEREBROVASCULAR ACCIDENT [None]
  - SEPSIS [None]
  - DISEASE PROGRESSION [None]
